FAERS Safety Report 6482762-5 (Version None)
Quarter: 2009Q4

REPORT INFORMATION
  Report Type: 
  Country: None (occurrence: None)
  Receive Date: 20091209
  Receipt Date: 20091023
  Transmission Date: 20100525
  Serious: No
  Sender: FDA-Public Use
  Company Number: US-AMGEN-KDL370897

PATIENT
  Sex: Male

DRUGS (2)
  1. ENBREL [Suspect]
     Indication: PSORIASIS
     Dates: start: 20090608
  2. UNSPECIFIED TOPICAL PRODUCT [Concomitant]

REACTIONS (3)
  - INSOMNIA [None]
  - NASOPHARYNGITIS [None]
  - PARAESTHESIA [None]
